FAERS Safety Report 9579888 (Version 1)
Quarter: 2013Q3

REPORT INFORMATION
  Report Type: Spontaneous
  Country: US (occurrence: None)
  Receive Date: 20130930
  Receipt Date: 20130930
  Transmission Date: 20140515
  Serious: Yes (Hospitalization)
  Sender: FDA-Public Use
  Company Number: None

PATIENT
  Age: 44 Year
  Sex: Female
  Weight: 65.77 kg

DRUGS (13)
  1. TECFIDERA [Suspect]
     Indication: MULTIPLE SCLEROSIS
     Dosage: 120 MG FOR 7 DAYS?240 MG STARTING ON DAY 8
     Route: 048
     Dates: start: 20130919, end: 20130921
  2. INSULIN PUMP [Concomitant]
  3. ORTHO/NOVUM [Concomitant]
  4. XANAX [Concomitant]
  5. NEUROTIN [Concomitant]
  6. KEPPRA [Concomitant]
  7. OMEGA 3 FISH OIL [Concomitant]
  8. BIOTIN [Concomitant]
  9. VITAMIN D-3 [Concomitant]
  10. CALCIUM 1200 MG + VITAMIN D [Concomitant]
  11. ONE SOURCE WOMEN^S MULTIVITAMIN [Concomitant]
  12. CHROMIUM PICOLINATE [Concomitant]
  13. CO Q10 [Concomitant]

REACTIONS (6)
  - Nausea [None]
  - Diarrhoea [None]
  - Vomiting [None]
  - Flushing [None]
  - Dehydration [None]
  - Convulsion [None]
